FAERS Safety Report 7152758 (Version 6)
Quarter: 2012Q4

REPORT INFORMATION
  Report Type: 
  Country: CA (occurrence: CA)
  Receive Date: 20091019
  Receipt Date: 20121102
  Transmission Date: 20130627
  Serious: Yes (Life-Threatening, Other)
  Sender: FDA-Public Use
  Company Number: PHMT2007CA00852

PATIENT
  Sex: Male

DRUGS (2)
  1. SANDOSTATIN LAR [Suspect]
     Indication: NEUROENDOCRINE TUMOUR
     Dosage: 30 mg every 4 weeks
     Route: 030
     Dates: start: 20070109
  2. SANDOSTATIN LAR [Suspect]
     Dosage: 20 mg every 2 weeks
     Route: 030

REACTIONS (23)
  - Feeling abnormal [Unknown]
  - Feeling cold [Unknown]
  - Chills [Unknown]
  - Feeling hot [Unknown]
  - Hyperhidrosis [Unknown]
  - Asthenia [Unknown]
  - Headache [Unknown]
  - Radial nerve palsy [Recovered/Resolved]
  - Cerebrovascular accident [Recovered/Resolved]
  - Depression [Unknown]
  - Throat cancer [Unknown]
  - Neoplasm progression [Unknown]
  - Metastases to liver [Unknown]
  - Malaise [Recovered/Resolved]
  - Pyrexia [Unknown]
  - Haematuria [Unknown]
  - Flushing [Unknown]
  - Night sweats [Unknown]
  - Gastrointestinal disorder [Recovered/Resolved]
  - Abdominal pain [Unknown]
  - Fatigue [Unknown]
  - Drug ineffective [Unknown]
  - Diarrhoea [Unknown]
